FAERS Safety Report 6016827-9 (Version None)
Quarter: 2008Q4

REPORT INFORMATION
  Report Type: 
  Country: None (occurrence: None)
  Receive Date: 20081222
  Receipt Date: 20081215
  Transmission Date: 20090506
  Serious: Yes (Hospitalization, Other)
  Sender: FDA-Public Use
  Company Number: FR-GILEAD-2008-0019532

PATIENT
  Sex: Male
  Weight: 56 kg

DRUGS (2)
  1. TRUVADA [Suspect]
     Route: 048
     Dates: start: 20071118, end: 20080521
  2. KALETRA [Concomitant]
     Indication: HIV INFECTION
     Route: 048
     Dates: start: 20071118, end: 20080521

REACTIONS (5)
  - DIARRHOEA [None]
  - OVERDOSE [None]
  - RENAL FAILURE ACUTE [None]
  - VOMITING [None]
  - WEIGHT DECREASED [None]
